FAERS Safety Report 9360984 (Version 1)
Quarter: 2013Q2

REPORT INFORMATION
  Report Type: Spontaneous
  Country: US (occurrence: None)
  Receive Date: 20130620
  Receipt Date: 20130620
  Transmission Date: 20140414
  Serious: No
  Sender: FDA-Public Use
  Company Number: None

PATIENT
  Age: 4 Year
  Sex: Male

DRUGS (2)
  1. SINGULAIR [Suspect]
     Indication: ASTHMA
     Dates: start: 20110601, end: 20120201
  2. SINGULAIR [Suspect]
     Indication: MULTIPLE ALLERGIES
     Dates: start: 20110601, end: 20120201

REACTIONS (2)
  - Nightmare [None]
  - Insomnia [None]
